FAERS Safety Report 4318424-X (Version None)
Quarter: 2004Q1

REPORT INFORMATION
  Report Type: 
  Country: None (occurrence: None)
  Receive Date: 20040315
  Receipt Date: 20040302
  Transmission Date: 20041129
  Serious: Yes (Hospitalization)
  Sender: FDA-Public Use
  Company Number: 04P-056-0252088-00

PATIENT
  Age: 90 Year
  Sex: Female
  Weight: 45 kg

DRUGS (9)
  1. TRICOR [Suspect]
     Dosage: 200 M G, 1 IN 1 D, ORAL
     Route: 048
     Dates: end: 20040120
  2. LORAZEPAM [Concomitant]
  3. CARBIMAZOLE [Concomitant]
  4. PERINDOPRIL [Concomitant]
  5. ALDACTAZINE [Concomitant]
  6. SOTALOL HYDROCHLORIDE [Concomitant]
  7. ISOSORBIDE MONONITRATE [Concomitant]
  8. CALCIUM WITH VITAMIN D [Concomitant]
  9. POTASSIUM CHLORIDE [Concomitant]

REACTIONS (6)
  - AGITATION [None]
  - AGRANULOCYTOSIS [None]
  - ASTHENIA [None]
  - CHOLELITHIASIS [None]
  - CHOLESTASIS [None]
  - JAUNDICE [None]
